FAERS Safety Report 14272678 (Version 9)
Quarter: 2019Q2

REPORT INFORMATION
  Report Type: Spontaneous
  Country: US (occurrence: US)
  Receive Date: 20171212
  Receipt Date: 20190415
  Transmission Date: 20190711
  Serious: Yes (Hospitalization, Other)
  Sender: FDA-Public Use
  Company Number: US-BRISTOL-MYERS SQUIBB COMPANY-BMS-2017-110024

PATIENT
  Sex: Female
  Weight: 101.59 kg

DRUGS (1)
  1. ORENCIA [Suspect]
     Active Substance: ABATACEPT
     Indication: RHEUMATOID ARTHRITIS
     Dosage: 125 MG, QWK
     Route: 058
     Dates: start: 201708

REACTIONS (9)
  - Stress [Recovering/Resolving]
  - Cheilitis [Recovering/Resolving]
  - Oral herpes [Unknown]
  - Blood potassium increased [Unknown]
  - Bronchitis [Unknown]
  - Hospitalisation [Unknown]
  - Stomatitis [Unknown]
  - Influenza [Unknown]
  - Pneumonia [Unknown]
